FAERS Safety Report 25767390 (Version 1)
Quarter: 2025Q3

REPORT INFORMATION
  Report Type: Report from Study
  Country: US (occurrence: US)
  Receive Date: 20250905
  Receipt Date: 20250905
  Transmission Date: 20251020
  Serious: Yes (Death)
  Sender: OTSUKA
  Company Number: US-MMM-Otsuka-H8IGX7OT

PATIENT
  Age: 40 Year
  Sex: Male

DRUGS (1)
  1. ARIPIPRAZOLE [Suspect]
     Active Substance: ARIPIPRAZOLE
     Indication: Bipolar disorder
     Route: 065

REACTIONS (2)
  - Death [Fatal]
  - Overdose [Fatal]

NARRATIVE: CASE EVENT DATE: 20250829
